FAERS Safety Report 10158573 (Version 2)
Quarter: 2014Q2

REPORT INFORMATION
  Report Type: Spontaneous
  Country: US (occurrence: US)
  Receive Date: 20140507
  Receipt Date: 20140507
  Transmission Date: 20141212
  Serious: Yes (Other)
  Sender: FDA-Public Use
  Company Number: US-BRISTOL-MYERS SQUIBB COMPANY-18566026

PATIENT
  Age: 67 Year
  Sex: Female
  Weight: 81.18 kg

DRUGS (16)
  1. BYDUREON 2MG VIAL + SYRINGE [Suspect]
     Indication: TYPE 2 DIABETES MELLITUS
     Route: 058
     Dates: start: 20121018
  2. BYDUREON 2MG VIAL + SYRINGE [Suspect]
     Indication: TYPE 2 DIABETES MELLITUS
     Route: 058
     Dates: start: 201210
  3. BYETTA PEN DISPOSABLE [Suspect]
     Indication: TYPE 2 DIABETES MELLITUS
     Route: 058
     Dates: start: 2010
  4. BYETTA PEN DISPOSABLE [Suspect]
     Indication: TYPE 2 DIABETES MELLITUS
     Route: 058
  5. BYETTA PEN DISPOSABLE [Suspect]
     Indication: TYPE 2 DIABETES MELLITUS
     Route: 058
  6. EXENATIDE 10MCG PEN, DISPOSABLE DEVICE [Concomitant]
  7. METFORMIN [Concomitant]
     Indication: TYPE 2 DIABETES MELLITUS
     Dates: end: 20121112
  8. METFORMIN [Concomitant]
     Indication: TYPE 2 DIABETES MELLITUS
     Dates: end: 20121112
  9. METFORMIN [Concomitant]
     Indication: TYPE 2 DIABETES MELLITUS
     Route: 048
  10. METFORMIN [Concomitant]
     Indication: TYPE 2 DIABETES MELLITUS
  11. SYNTHROID [Concomitant]
     Indication: HYPOTHYROIDISM
     Route: 048
  12. LEXAPRO [Concomitant]
     Indication: FIBROMYALGIA
     Route: 048
  13. DECADRON [Concomitant]
     Indication: SCIATICA
     Route: 051
  14. PREDNISONE [Concomitant]
     Indication: SCIATICA
     Route: 048
  15. INSULIN [Concomitant]
     Indication: BLOOD GLUCOSE INCREASED
  16. CRESTOR [Concomitant]

REACTIONS (12)
  - Sciatica [Recovered/Resolved]
  - Abasia [Recovered/Resolved]
  - Dysstasia [Recovered/Resolved]
  - Injection site nodule [Not Recovered/Not Resolved]
  - Injection site induration [Recovered/Resolved]
  - Blood glucose increased [Recovered/Resolved]
  - Scar [Not Recovered/Not Resolved]
  - Fatigue [Unknown]
  - Injection site hypertrophy [Not Recovered/Not Resolved]
  - Injection site discolouration [Not Recovered/Not Resolved]
  - Injection site pain [Not Recovered/Not Resolved]
  - Asthenia [Unknown]
